FAERS Safety Report 4319421-0 (Version None)
Quarter: 2004Q1

REPORT INFORMATION
  Report Type: 
  Country: None (occurrence: None)
  Receive Date: 20040319
  Receipt Date: 20040315
  Transmission Date: 20041129
  Serious: Yes (Death, Hospitalization)
  Sender: FDA-Public Use
  Company Number: US-BRISTOL-MYERS SQUIBB COMPANY-12534665

PATIENT
  Age: 55 Year
  Sex: Male

DRUGS (3)
  1. TEQUIN [Suspect]
     Indication: CELLULITIS
     Route: 048
     Dates: start: 20040101
  2. KEFLEX [Concomitant]
     Indication: CELLULITIS
  3. LEVAQUIN [Concomitant]
     Indication: CELLULITIS
     Route: 042

REACTIONS (3)
  - CARDIAC ARREST [None]
  - MUSCLE TIGHTNESS [None]
  - VENTRICULAR ARRHYTHMIA [None]
